FAERS Safety Report 22317542 (Version 1)
Quarter: 2023Q2

REPORT INFORMATION
  Report Type: Spontaneous
  Country: IE (occurrence: IE)
  Receive Date: 20230515
  Receipt Date: 20230515
  Transmission Date: 20230722
  Serious: Yes (Hospitalization)
  Sender: FDA-Public Use
  Company Number: None

PATIENT
  Age: 61 Year
  Sex: Female

DRUGS (2)
  1. STELARA [Suspect]
     Active Substance: USTEKINUMAB
     Indication: Psoriasis
     Dosage: 2ND DOSE
     Route: 058
     Dates: start: 20210117, end: 20210117
  2. STELARA [Suspect]
     Active Substance: USTEKINUMAB
     Dosage: 1ST DOSE
     Route: 058
     Dates: start: 20201212, end: 20201212

REACTIONS (3)
  - Headache [Recovered/Resolved]
  - Delirium [Recovered/Resolved]
  - Hallucination [Recovered/Resolved]

NARRATIVE: CASE EVENT DATE: 20210126
